FAERS Safety Report 20473950 (Version 1)
Quarter: 2022Q1

REPORT INFORMATION
  Report Type: Spontaneous
  Country: US (occurrence: None)
  Receive Date: 20220215
  Receipt Date: 20220215
  Transmission Date: 20220423
  Serious: Yes (Other)
  Sender: FDA-Public Use
  Company Number: 2022A069443

PATIENT
  Sex: Female

DRUGS (1)
  1. LYNPARZA [Suspect]
     Active Substance: OLAPARIB
     Indication: Ovarian cancer stage IV
     Dosage: UNKNOWN
     Route: 048

REACTIONS (4)
  - Lung infiltration [Unknown]
  - Interstitial lung disease [Unknown]
  - Pneumonitis [Unknown]
  - Lung disorder [Not Recovered/Not Resolved]
